FAERS Safety Report 4458081-5 (Version None)
Quarter: 2004Q3

REPORT INFORMATION
  Report Type: 
  Country: None (occurrence: None)
  Receive Date: 20040922
  Receipt Date: 20040903
  Transmission Date: 20050211
  Serious: No
  Sender: FDA-Public Use
  Company Number: A01200404274

PATIENT
  Age: 63 Year
  Sex: Female

DRUGS (2)
  1. ELOXATIN [Suspect]
     Indication: COLORECTAL CANCER METASTATIC
     Dosage: 85 MG/M2 OTHER
     Dates: start: 20031201, end: 20031201
  2. FLUOROURACIL [Concomitant]

REACTIONS (7)
  - CHEST PAIN [None]
  - ERYTHEMA [None]
  - FEELING HOT [None]
  - HYPOAESTHESIA [None]
  - PARAESTHESIA [None]
  - SWELLING FACE [None]
  - SYNCOPE [None]
